FAERS Safety Report 9899729 (Version 3)
Quarter: 2015Q3

REPORT INFORMATION
  Report Type: Spontaneous
  Country: US (occurrence: US)
  Receive Date: 20140214
  Receipt Date: 20150810
  Transmission Date: 20151125
  Serious: No
  Sender: FDA-Public Use
  Company Number: US-GILEAD-2011-0041824

PATIENT
  Age: 64 Year
  Sex: Female

DRUGS (6)
  1. LETAIRIS [Suspect]
     Active Substance: AMBRISENTAN
     Indication: PULMONARY HYPERTENSION
     Route: 048
     Dates: start: 20100428
  2. LETAIRIS [Suspect]
     Active Substance: AMBRISENTAN
     Indication: MOUNTAIN SICKNESS ACUTE
  3. LETAIRIS [Suspect]
     Active Substance: AMBRISENTAN
     Indication: SLEEP APNOEA SYNDROME
  4. LETAIRIS [Suspect]
     Active Substance: AMBRISENTAN
     Indication: VENTRICULAR SEPTAL DEFECT
  5. REVATIO [Concomitant]
     Active Substance: SILDENAFIL CITRATE
  6. LETAIRIS [Suspect]
     Active Substance: AMBRISENTAN
     Indication: CORONARY ARTERY DISEASE

REACTIONS (1)
  - Dizziness [Unknown]
